FAERS Safety Report 20732866 (Version 1)
Quarter: 2022Q2

REPORT INFORMATION
  Report Type: Spontaneous
  Country: CN (occurrence: CN)
  Receive Date: 20220420
  Receipt Date: 20220420
  Transmission Date: 20220721
  Serious: Yes (Hospitalization)
  Sender: FDA-Public Use
  Company Number: CN-BAXTER-2022BAX008722

PATIENT
  Age: 0 Year
  Sex: Male
  Weight: 9.5 kg

DRUGS (6)
  1. CYCLOPHOSPHAMIDE [Suspect]
     Active Substance: CYCLOPHOSPHAMIDE
     Indication: Neuroblastoma
     Dosage: CYCLOPHOSPHAMIDE (0.24 G) + 4:1 GLUCOSE SODIUM CHLORIDE SOLUTION (100 ML)
     Route: 041
     Dates: start: 20220125, end: 20220125
  2. SODIUM CHLORIDE [Suspect]
     Active Substance: SODIUM CHLORIDE
     Indication: Medication dilution
     Dosage: CISPLATIN (18 MG) + 0.9% SODIUM CHLORIDE INJECTION (150 ML)
     Route: 041
     Dates: start: 20220126, end: 20220126
  3. SODIUM CHLORIDE [Suspect]
     Active Substance: SODIUM CHLORIDE
     Dosage: PHARMORUBICIN (EPIRUBICIN HYDROCHLORIDE) (6 MG) + 0.9% SODIUM CHLORIDE INJECTION (100 ML)
     Route: 041
     Dates: start: 20220127, end: 20220127
  4. DEXTROSE\SODIUM CHLORIDE [Suspect]
     Active Substance: DEXTROSE\SODIUM CHLORIDE
     Indication: Medication dilution
     Dosage: CYCLOPHOSPHAMIDE (0.24 G) + 4:1 GLUCOSE SODIUM CHLORIDE SOLUTION (100 ML)
     Route: 041
     Dates: start: 20220125, end: 20220125
  5. CISPLATIN [Suspect]
     Active Substance: CISPLATIN
     Indication: Neuroblastoma
     Dosage: CISPLATIN (18 MG) + 0.9% SODIUM CHLORIDE INJECTION (150 ML)
     Route: 041
     Dates: start: 20220126, end: 20220126
  6. EPIRUBICIN [Suspect]
     Active Substance: EPIRUBICIN
     Indication: Neuroblastoma
     Dosage: PHARMORUBICIN (EPIRUBICIN HYDROCHLORIDE) (6 MG) + 0.9% SODIUM CHLORIDE INJECTION (100 ML)
     Route: 041
     Dates: start: 20220127, end: 20220127

REACTIONS (1)
  - Myelosuppression [Recovering/Resolving]

NARRATIVE: CASE EVENT DATE: 20220128
